FAERS Safety Report 5785583-1 (Version None)
Quarter: 2008Q2

REPORT INFORMATION
  Report Type: 
  Country: None (occurrence: None)
  Receive Date: 20080605
  Receipt Date: 20080220
  Transmission Date: 20081010
  Serious: No
  Sender: FDA-Public Use
  Company Number: A0710756A

PATIENT
  Age: 30 Year
  Sex: Female

DRUGS (1)
  1. ALLI [Suspect]
     Dates: start: 20080214, end: 20080215

REACTIONS (5)
  - DIZZINESS [None]
  - HEART RATE INCREASED [None]
  - HYPERSENSITIVITY [None]
  - PALPITATIONS [None]
  - RASH GENERALISED [None]
